FAERS Safety Report 7607936-9 (Version None)
Quarter: 2011Q3

REPORT INFORMATION
  Report Type: 
  Country: None (occurrence: None)
  Receive Date: 20110714
  Receipt Date: 20110701
  Transmission Date: 20111222
  Serious: Yes (Hospitalization, Other)
  Sender: FDA-Public Use
  Company Number: US-BAYER-201039811NA

PATIENT
  Age: 23 Year
  Sex: Female
  Weight: 102.4 kg

DRUGS (13)
  1. YAZ [Suspect]
     Indication: PREMENSTRUAL SYNDROME
     Route: 048
     Dates: start: 20081101, end: 20090301
  2. DROSPIRENONE AND ETHINYL ESTRADIOL [Suspect]
     Indication: PREMENSTRUAL SYNDROME
     Dosage: UNK
     Dates: start: 20081101, end: 20090301
  3. FLOVENT [Concomitant]
     Indication: ASTHMA
     Dosage: UNK
     Dates: start: 20110101
  4. PRILOSEC [Concomitant]
     Dosage: 20 MG, QD
  5. RELPAX [Concomitant]
     Indication: MIGRAINE
     Dosage: UNK
     Dates: start: 20060801
  6. ALLEGRA [Concomitant]
     Dosage: 600 MG, BID
  7. TETRACYCLINE [Concomitant]
     Dosage: UNK
     Dates: start: 20000101
  8. MAXAIR [Concomitant]
     Dosage: UNK
     Dates: start: 20080101
  9. NAPROXEN [Concomitant]
     Dosage: UNK
     Dates: start: 20060101
  10. LAMITICAL [Concomitant]
     Dosage: 200 MG, BID
  11. LAMODEL DIERETICS [Concomitant]
     Indication: DIURETIC THERAPY
     Dosage: UNK
     Dates: start: 20090101
  12. DILANTIN [Concomitant]
     Indication: EPILEPSY
     Dosage: UNK
     Dates: start: 19870101
  13. TEGRETOL [Concomitant]
     Indication: EPILEPSY
     Dosage: UNK
     Dates: start: 19920101, end: 19930101

REACTIONS (6)
  - CHOLELITHIASIS [None]
  - APPENDICITIS [None]
  - CHOLECYSTITIS CHRONIC [None]
  - PAIN [None]
  - APPENDICECTOMY [None]
  - GALLBLADDER DISORDER [None]
